FAERS Safety Report 8144027-5 (Version None)
Quarter: 2012Q1

REPORT INFORMATION
  Report Type: 
  Country: None (occurrence: None)
  Receive Date: 20120217
  Receipt Date: 20120217
  Transmission Date: 20120608
  Serious: Yes (Other)
  Sender: FDA-Public Use
  Company Number: None

PATIENT
  Age: 26 Year
  Sex: Female
  Weight: 61.234 kg

DRUGS (1)
  1. BEYAZ [Suspect]
     Indication: CONTRACEPTION
     Route: 048

REACTIONS (8)
  - DEPRESSION [None]
  - YELLOW SKIN [None]
  - ABDOMINAL PAIN [None]
  - OCULAR ICTERUS [None]
  - BLOOD TESTOSTERONE DECREASED [None]
  - ACNE [None]
  - HYPOAESTHESIA [None]
  - VISION BLURRED [None]
